FAERS Safety Report 9698742 (Version 1)
Quarter: 2013Q4

REPORT INFORMATION
  Report Type: Spontaneous
  Country: US (occurrence: US)
  Receive Date: 20131120
  Receipt Date: 20131120
  Transmission Date: 20140711
  Serious: Yes (Other)
  Sender: FDA-Public Use
  Company Number: US-PFIZER INC-2013328951

PATIENT
  Age: 36 Year
  Sex: Female

DRUGS (1)
  1. PROVERA [Suspect]
     Indication: MENSTRUAL CYCLE MANAGEMENT
     Dosage: UNK

REACTIONS (2)
  - Breast cancer female [Unknown]
  - Blood glucose increased [Unknown]
